FAERS Safety Report 10913761 (Version 2)
Quarter: 2015Q2

REPORT INFORMATION
  Report Type: Spontaneous
  Country: US (occurrence: US)
  Receive Date: 20150313
  Receipt Date: 20150511
  Transmission Date: 20150821
  Serious: No
  Sender: FDA-Public Use
  Company Number: US-PFIZER INC-2015087070

PATIENT
  Age: 74 Year
  Sex: Female

DRUGS (7)
  1. IMURAN [Interacting]
     Active Substance: AZATHIOPRINE
     Indication: SYSTEMIC LUPUS ERYTHEMATOSUS
     Dosage: UNK
  2. EFFEXOR XR [Suspect]
     Active Substance: VENLAFAXINE HYDROCHLORIDE
     Indication: ANXIETY
     Dosage: UNK
  3. TRAMADOL [Interacting]
     Active Substance: TRAMADOL
     Indication: PAIN
  4. EFFEXOR XR [Interacting]
     Active Substance: VENLAFAXINE HYDROCHLORIDE
     Dosage: UNK, ALTERNATE DAY
     Dates: start: 201412
  5. TRAMADOL [Interacting]
     Active Substance: TRAMADOL
     Indication: MYALGIA
     Dosage: UNK
  6. LEXAPRO [Interacting]
     Active Substance: ESCITALOPRAM OXALATE
     Indication: ANXIETY
     Dosage: 10 MG, DAILY
  7. ASA [Concomitant]
     Active Substance: ASPIRIN
     Indication: MYALGIA
     Dosage: UNK

REACTIONS (7)
  - Decreased appetite [Recovered/Resolved]
  - Drug interaction [Recovered/Resolved]
  - Memory impairment [Recovered/Resolved]
  - Mental disorder [Recovered/Resolved]
  - Electric shock [Unknown]
  - Blood potassium decreased [Recovered/Resolved]
  - Weight decreased [Recovered/Resolved]
